FAERS Safety Report 25008194 (Version 1)
Quarter: 2025Q1

REPORT INFORMATION
  Report Type: Spontaneous
  Country: IN (occurrence: IN)
  Receive Date: 20250225
  Receipt Date: 20250225
  Transmission Date: 20250409
  Serious: Yes (Other)
  Sender: ACCORD
  Company Number: IN-MLMSERVICE-20250207-PI398987-00255-1

PATIENT
  Age: 38 Year
  Sex: Male

DRUGS (3)
  1. CISPLATIN [Suspect]
     Active Substance: CISPLATIN
     Indication: Lip and/or oral cavity cancer
  2. FLUOROURACIL [Suspect]
     Active Substance: FLUOROURACIL
     Indication: Lip and/or oral cavity cancer
  3. PACLITAXEL [Suspect]
     Active Substance: PACLITAXEL
     Indication: Lip and/or oral cavity cancer

REACTIONS (1)
  - Mania [Unknown]
